FAERS Safety Report 24681913 (Version 1)
Quarter: 2024Q4

REPORT INFORMATION
  Report Type: Spontaneous
  Country: ES (occurrence: ES)
  Receive Date: 20241130
  Receipt Date: 20241130
  Transmission Date: 20250114
  Serious: Yes (Other)
  Sender: ALEXION PHARMACEUTICALS
  Company Number: ES-AstraZeneca-CH-00750504A

PATIENT
  Age: 71 Year

DRUGS (1)
  1. LYNPARZA [Suspect]
     Active Substance: OLAPARIB

REACTIONS (8)
  - Hepatic cancer recurrent [Unknown]
  - Metastases to lung [Unknown]
  - Metastases to liver [Unknown]
  - Tumour marker decreased [Unknown]
  - Metastasis [Unknown]
  - Investigation abnormal [Unknown]
  - Chemotherapy [Unknown]
  - Nodule [Unknown]
